FAERS Safety Report 12982126 (Version 1)
Quarter: 2016Q4

REPORT INFORMATION
  Report Type: Spontaneous
  Country: US (occurrence: US)
  Receive Date: 20161129
  Receipt Date: 20161129
  Transmission Date: 20170207
  Serious: No
  Sender: FDA-Public Use
  Company Number: PHEH2016US030980

PATIENT
  Sex: Female

DRUGS (1)
  1. VOTRIENT [Suspect]
     Active Substance: PAZOPANIB HYDROCHLORIDE
     Indication: MALAISE
     Dosage: 400 MG, QD
     Route: 048
     Dates: start: 20140513

REACTIONS (3)
  - Product use issue [Unknown]
  - Vomiting [Unknown]
  - Fatigue [Unknown]
